FAERS Safety Report 19695707 (Version 1)
Quarter: 2021Q3

REPORT INFORMATION
  Report Type: Spontaneous
  Country: US (occurrence: US)
  Receive Date: 20210812
  Receipt Date: 20210812
  Transmission Date: 20211014
  Serious: No
  Sender: FDA-Public Use
  Company Number: None

PATIENT
  Age: 58 Year
  Sex: Female
  Weight: 67.5 kg

DRUGS (8)
  1. DIPHENHYDRAMINE. [Concomitant]
     Active Substance: DIPHENHYDRAMINE
  2. VALUMEDS NIGHTTIME SLEEP AID [Suspect]
     Active Substance: DIPHENHYDRAMINE HYDROCHLORIDE
     Indication: SLEEP DISORDER
     Dosage: ?          QUANTITY:2 CAPSULE(S);?
     Route: 048
     Dates: start: 20210810, end: 20210812
  3. PROGESTERONE. [Concomitant]
     Active Substance: PROGESTERONE
  4. ESTRADIOL. [Concomitant]
     Active Substance: ESTRADIOL
  5. HYDROXYZINE [Concomitant]
     Active Substance: HYDROXYZINE HYDROCHLORIDE
  6. VITAMIN D [Concomitant]
     Active Substance: VITAMIN D NOS
  7. SUPER B [Concomitant]
  8. GINKO BILOBA [Concomitant]
     Active Substance: GINKGO

REACTIONS (6)
  - Depression [None]
  - Dyspnoea [None]
  - Muscle spasms [None]
  - Panic disorder [None]
  - Fear [None]
  - Pain [None]

NARRATIVE: CASE EVENT DATE: 20210810
